FAERS Safety Report 11932845 (Version 2)
Quarter: 2016Q2

REPORT INFORMATION
  Report Type: Report from Study
  Country: US (occurrence: US)
  Receive Date: 20160120
  Receipt Date: 20160502
  Transmission Date: 20160815
  Serious: Yes (Other)
  Sender: FDA-Public Use
  Company Number: PHHO2011US023921

PATIENT
  Age: 57 Year
  Sex: Male
  Weight: 85.2 kg

DRUGS (7)
  1. DABRAFENIB [Suspect]
     Active Substance: DABRAFENIB
     Dosage: 75 MG, BID
     Route: 048
     Dates: start: 20111012
  2. DABRAFENIB [Suspect]
     Active Substance: DABRAFENIB
     Dosage: 100 MG, BID
     Route: 048
     Dates: start: 20150318
  3. DABRAFENIB [Suspect]
     Active Substance: DABRAFENIB
     Dosage: 150 MG, BID
     Route: 048
     Dates: start: 20150325, end: 20150327
  4. DABRAFENIB [Suspect]
     Active Substance: DABRAFENIB
     Indication: METASTATIC MALIGNANT MELANOMA
     Dosage: 150 MG, BID
     Route: 048
     Dates: start: 20101104
  5. DABRAFENIB [Suspect]
     Active Substance: DABRAFENIB
     Dosage: 100 MG, BID
     Route: 048
     Dates: start: 20110913
  6. TRAMETINIB [Suspect]
     Active Substance: TRAMETINIB
     Dosage: 1 MG, QD
     Route: 048
     Dates: start: 20150303, end: 20150326
  7. TRAMETINIB [Suspect]
     Active Substance: TRAMETINIB
     Indication: METASTATIC MALIGNANT MELANOMA
     Dosage: 2 MG, QD
     Route: 048
     Dates: start: 20101104, end: 20111103

REACTIONS (4)
  - Pyrexia [Recovered/Resolved]
  - Pyrexia [Recovered/Resolved]
  - Chills [Recovered/Resolved]
  - Chills [Recovered/Resolved]

NARRATIVE: CASE EVENT DATE: 20111103
